FAERS Safety Report 21268493 (Version 1)
Quarter: 2022Q3

REPORT INFORMATION
  Report Type: Spontaneous
  Country: PL (occurrence: PL)
  Receive Date: 20220830
  Receipt Date: 20220830
  Transmission Date: 20221027
  Serious: Yes (Hospitalization)
  Sender: FDA-Public Use
  Company Number: PL-NAARI PTE LIMITED-2022NP000047

PATIENT
  Age: 25 Year
  Sex: Female

DRUGS (1)
  1. DROSPIRENONE AND ETHINYL ESTRADIOL [Suspect]
     Active Substance: DROSPIRENONE\ETHINYL ESTRADIOL
     Indication: Oral contraception
     Dosage: UNK, PILL
     Route: 048

REACTIONS (4)
  - Retinal haemorrhage [Recovered/Resolved]
  - Retinal oedema [Recovered/Resolved]
  - Retinal vein occlusion [Recovered/Resolved]
  - Retinal artery occlusion [Recovered/Resolved]
